FAERS Safety Report 16569897 (Version 2)
Quarter: 2020Q1

REPORT INFORMATION
  Report Type: Spontaneous
  Country: GB (occurrence: GB)
  Receive Date: 20190715
  Receipt Date: 20200310
  Transmission Date: 20200409
  Serious: Yes (Other)
  Sender: FDA-Public Use
  Company Number: GB-TEVA-2019-GB-1076550

PATIENT
  Age: 18 Year
  Sex: Female

DRUGS (1)
  1. CLOTRIMAZOLE. [Suspect]
     Active Substance: CLOTRIMAZOLE
     Indication: VULVOVAGINAL CANDIDIASIS
     Route: 067

REACTIONS (3)
  - Vulvovaginal discomfort [Recovered/Resolved]
  - Vulvovaginal swelling [Recovered/Resolved]
  - Hypersensitivity [Unknown]
